FAERS Safety Report 6280418-5 (Version None)
Quarter: 2009Q3

REPORT INFORMATION
  Report Type: 
  Country: None (occurrence: None)
  Receive Date: 20090724
  Receipt Date: 20090715
  Transmission Date: 20100115
  Serious: Yes (Hospitalization)
  Sender: FDA-Public Use
  Company Number: DE-TEVA-202960USA

PATIENT
  Age: 47 Year
  Sex: Female
  Weight: 74.6 kg

DRUGS (8)
  1. BISELECT [Suspect]
     Indication: PALPITATIONS
     Route: 048
     Dates: start: 20080601
  2. PREDNISOLONE [Suspect]
     Indication: MIXED CONNECTIVE TISSUE DISEASE
     Dosage: 7.5-0-2.5
     Route: 048
     Dates: start: 20030101
  3. TOLPERISONE [Suspect]
     Indication: MUSCULOSKELETAL PAIN
     Dosage: 100MG
     Route: 048
     Dates: start: 20080901
  4. HYDROXYCHLOROQUINE SULFATE [Suspect]
     Indication: MIXED CONNECTIVE TISSUE DISEASE
     Dosage: 400MG
     Route: 048
     Dates: start: 20030101, end: 20090118
  5. OMEPRAZOLE [Suspect]
     Indication: PROPHYLAXIS AGAINST GASTROINTESTINAL ULCER
     Route: 048
     Dates: start: 20050101
  6. LEKOVIT CA [Concomitant]
     Indication: OSTEOPOROSIS PROPHYLAXIS
     Route: 048
  7. IBUPROFEN [Concomitant]
     Indication: PAIN
     Dosage: 1200MG
     Route: 048
  8. METOCLOPRAMIDE [Concomitant]
     Indication: CHANGE OF BOWEL HABIT
     Route: 048
     Dates: start: 20050101

REACTIONS (2)
  - DRUG INTERACTION [None]
  - MYOSITIS [None]
